FAERS Safety Report 15480240 (Version 1)
Quarter: 2018Q4

REPORT INFORMATION
  Report Type: Spontaneous
  Country: US (occurrence: US)
  Receive Date: 20181009
  Receipt Date: 20181009
  Transmission Date: 20190205
  Serious: No
  Sender: FDA-Public Use
  Company Number: US-EX USA HOLDINGS-EXHL20180560

PATIENT
  Age: 39 Year
  Sex: Female

DRUGS (1)
  1. BENZNIDAZOLE. [Suspect]
     Active Substance: BENZNIDAZOLE
     Indication: CHAGAS^ CARDIOMYOPATHY
     Dosage: 3 TABLETS (300 MG)
     Route: 048
     Dates: start: 201808

REACTIONS (3)
  - Insomnia [Unknown]
  - Product use issue [None]
  - Pain in extremity [Unknown]

NARRATIVE: CASE EVENT DATE: 201808
